FAERS Safety Report 5377416-2 (Version None)
Quarter: 2007Q3

REPORT INFORMATION
  Report Type: 
  Country: None (occurrence: None)
  Receive Date: 20070703
  Receipt Date: 20070625
  Transmission Date: 20080115
  Serious: Yes (Hospitalization)
  Sender: FDA-Public Use
  Company Number: B0474393A

PATIENT
  Age: 64 Year
  Sex: Female
  Weight: 56 kg

DRUGS (5)
  1. LAPATINIB [Suspect]
     Dosage: 1250MG PER DAY
     Route: 048
     Dates: start: 20070223
  2. CAPECITABINE [Suspect]
     Dosage: 3000MG PER DAY
     Route: 048
     Dates: start: 20070223
  3. DUROGESIC PATCH [Concomitant]
     Indication: PAIN
     Dosage: 37.5MG ALTERNATE DAYS
     Route: 061
     Dates: start: 20070523
  4. IBUPROFEN [Concomitant]
     Indication: PAIN
     Dosage: 400MG THREE TIMES PER DAY
     Route: 048
     Dates: start: 20070209
  5. LASIX [Concomitant]
     Dosage: 20MG TWICE PER DAY
     Route: 048
     Dates: start: 20070523

REACTIONS (5)
  - NAUSEA [None]
  - NEOPLASM [None]
  - OEDEMA [None]
  - PYREXIA [None]
  - VOMITING [None]
